FAERS Safety Report 19153526 (Version 1)
Quarter: 2021Q2

REPORT INFORMATION
  Report Type: Spontaneous
  Country: US (occurrence: US)
  Receive Date: 20210419
  Receipt Date: 20210419
  Transmission Date: 20210717
  Serious: No
  Sender: FDA-Public Use
  Company Number: US-KVK-TECH, INC-20210100009

PATIENT
  Sex: Female

DRUGS (3)
  1. PHENTERMINE HYDROCHLORIDE TABLETS, USP [Suspect]
     Active Substance: PHENTERMINE HYDROCHLORIDE
     Dosage: UNK
     Dates: start: 20210110
  2. PHENTERMINE HYDROCHLORIDE TABLETS, USP [Suspect]
     Active Substance: PHENTERMINE HYDROCHLORIDE
     Indication: WEIGHT DECREASED
     Dosage: UNK
     Dates: start: 202012, end: 2020
  3. SYNTHROID [Concomitant]
     Active Substance: LEVOTHYROXINE SODIUM
     Indication: HYPOTHYROIDISM

REACTIONS (3)
  - Dysphagia [Unknown]
  - Pain in jaw [Unknown]
  - Hypoaesthesia [Unknown]
